FAERS Safety Report 15201260 (Version 1)
Quarter: 2018Q3

REPORT INFORMATION
  Report Type: Spontaneous
  Country: US (occurrence: US)
  Receive Date: 20180627
  Receipt Date: 20180627
  Transmission Date: 20181010
  Serious: Yes (Disabling, Other)
  Sender: FDA-Public Use
  Company Number: None

PATIENT
  Age: 30 Year
  Sex: Male
  Weight: 85.5 kg

DRUGS (4)
  1. FLUTICASONE PROPIONATE NASAL SPRAY, USP, 50 MCG PER SPRAY, 120 METERED [Suspect]
     Active Substance: FLUTICASONE PROPIONATE
     Indication: SINUSITIS
     Dosage: ?          QUANTITY:2 SPRAY(S);?
     Route: 055
     Dates: start: 20171213, end: 20180626
  2. ADDERALL XR [Concomitant]
     Active Substance: AMPHETAMINE ASPARTATE\AMPHETAMINE SULFATE\DEXTROAMPHETAMINE SACCHARATE\DEXTROAMPHETAMINE SULFATE
  3. CENTRUM 1 A DAY MULTIVITAMIN FOR MEN [Concomitant]
  4. FLUTICASONE PROPIONATE NASAL SPRAY, USP, 50 MCG PER SPRAY, 120 METERED [Suspect]
     Active Substance: FLUTICASONE PROPIONATE
     Indication: HYPERSENSITIVITY
     Dosage: ?          QUANTITY:2 SPRAY(S);?
     Route: 055
     Dates: start: 20171213, end: 20180626

REACTIONS (4)
  - Headache [None]
  - Product contamination physical [None]
  - Product use issue [None]
  - Epistaxis [None]

NARRATIVE: CASE EVENT DATE: 20180101
